FAERS Safety Report 22249145 (Version 1)
Quarter: 2023Q2

REPORT INFORMATION
  Report Type: Spontaneous
  Country: US (occurrence: None)
  Receive Date: 20230425
  Receipt Date: 20230425
  Transmission Date: 20230722
  Serious: No
  Sender: FDA-Public Use
  Company Number: US-Nobelpharma America, LLC-NPA-2023-00672

PATIENT
  Age: 24 Year
  Sex: Female

DRUGS (1)
  1. SIROLIMUS [Suspect]
     Active Substance: SIROLIMUS
     Indication: Benign neoplasm of skin
     Dosage: APPLY 2.5 CM TOPICALLY TWICE DAILY
     Route: 061
     Dates: start: 20230221

REACTIONS (1)
  - Acne [Unknown]

NARRATIVE: CASE EVENT DATE: 20230101
